FAERS Safety Report 7287123-7 (Version None)
Quarter: 2011Q1

REPORT INFORMATION
  Report Type: 
  Country: None (occurrence: None)
  Receive Date: 20110211
  Receipt Date: 20110202
  Transmission Date: 20110831
  Serious: Yes (Hospitalization)
  Sender: FDA-Public Use
  Company Number: JO-ROCHE-757551

PATIENT
  Age: 45 Year
  Sex: Female

DRUGS (4)
  1. CISPLATIN [Concomitant]
     Indication: METASTATIC GASTRIC CANCER
     Dosage: FORM: INFUSION
     Route: 042
     Dates: start: 20101215
  2. XELODA [Suspect]
     Indication: METASTATIC GASTRIC CANCER
     Dosage: FORM: INFUSION
     Route: 042
     Dates: start: 20101215, end: 20101224
  3. DOCETAXEL [Concomitant]
     Indication: METASTATIC GASTRIC CANCER
     Dosage: FORM: INFUSION
     Route: 042
     Dates: start: 20101215
  4. NEULASTIM [Concomitant]
     Dosage: AFTER THE END OF 1ST CYCLE

REACTIONS (3)
  - NAUSEA [None]
  - HYPOTENSION [None]
  - VOMITING [None]
